FAERS Safety Report 18302303 (Version 1)
Quarter: 2020Q3

REPORT INFORMATION
  Report Type: Report from Study
  Country: BR (occurrence: BR)
  Receive Date: 20200923
  Receipt Date: 20200923
  Transmission Date: 20201103
  Serious: Yes (Hospitalization)
  Sender: FDA-Public Use
  Company Number: BR-JNJFOC-20200929382

PATIENT
  Age: 7 Year
  Sex: Female
  Weight: 28.7 kg

DRUGS (1)
  1. REMICADE [Suspect]
     Active Substance: INFLIXIMAB
     Indication: COLITIS ULCERATIVE
     Dosage: 2 VIALS
     Route: 042
     Dates: start: 20200505

REACTIONS (3)
  - Decreased appetite [Unknown]
  - Diarrhoea haemorrhagic [Unknown]
  - Vomiting [Unknown]

NARRATIVE: CASE EVENT DATE: 20200825
